FAERS Safety Report 9530905 (Version 1)
Quarter: 2013Q4

REPORT INFORMATION
  Report Type: Spontaneous
  Country: US (occurrence: None)
  Receive Date: 20130916
  Receipt Date: 20130916
  Transmission Date: 20140711
  Serious: Yes (Hospitalization)
  Sender: FDA-Public Use
  Company Number: None

PATIENT
  Age: 79 Year
  Sex: Female
  Weight: 53.1 kg

DRUGS (7)
  1. EVEROLIMUS [Suspect]
     Indication: THYROID CANCER
     Dosage: 10MG QD P.O.
     Route: 048
     Dates: start: 20130619, end: 20130909
  2. PASIREOTIDE [Suspect]
     Indication: THYROID CANCER
     Dosage: 60MG Q28DAYS IM
     Route: 030
     Dates: start: 20130619, end: 20130814
  3. CALCIUM [Concomitant]
  4. IMODIUM A-D [Concomitant]
  5. KLOR-CON [Concomitant]
  6. VITAMIN D3 [Concomitant]
  7. ASPIRIN [Concomitant]

REACTIONS (4)
  - Diarrhoea [None]
  - Drug ineffective [None]
  - Abdominal pain [None]
  - Muscle spasms [None]
